FAERS Safety Report 9501471 (Version 1)
Quarter: 2013Q3

REPORT INFORMATION
  Report Type: Spontaneous
  Country: NL (occurrence: NL)
  Receive Date: 20130905
  Receipt Date: 20130905
  Transmission Date: 20140515
  Serious: Yes (Congenital Anomaly)
  Sender: FDA-Public Use
  Company Number: NL-GLAXOSMITHKLINE-B0920217A

PATIENT
  Age: 0 Day
  Sex: 0

DRUGS (4)
  1. LAMOTRIGINE [Suspect]
     Indication: PRODUCT USED FOR UNKNOWN INDICATION
     Dosage: 250MG TWICE PER DAY
     Route: 064
  2. FRISIUM [Suspect]
     Indication: EPILEPSY
     Dosage: 10MG AS REQUIRED
     Route: 064
  3. FOLIC ACID [Concomitant]
     Route: 064
  4. VIMPAT [Concomitant]
     Indication: EPILEPSY
     Dosage: 50MG TWICE PER DAY
     Route: 064
     Dates: start: 20110602, end: 20110607

REACTIONS (2)
  - Congenital central nervous system anomaly [Not Recovered/Not Resolved]
  - Foetal exposure during pregnancy [Unknown]
